FAERS Safety Report 7073781-9 (Version None)
Quarter: 2010Q4

REPORT INFORMATION
  Report Type: 
  Country: None (occurrence: None)
  Receive Date: 20101029
  Receipt Date: 20100816
  Transmission Date: 20110411
  Serious: No
  Sender: FDA-Public Use
  Company Number: A0876101A

PATIENT
  Age: 67 Year
  Sex: Female

DRUGS (11)
  1. ADVAIR DISKUS 100/50 [Suspect]
     Indication: ASTHMA
     Dosage: 1PUFF TWICE PER DAY
     Route: 055
     Dates: start: 20100617, end: 20100730
  2. ALBUTEROL [Suspect]
     Indication: ASTHMA
     Route: 055
  3. CEFUROXIME AXETIL [Suspect]
     Indication: VIRAL INFECTION
     Dosage: 500MG UNKNOWN
     Route: 048
  4. ANTIBIOTICS [Concomitant]
  5. LEVOTHYROXINE SODIUM [Concomitant]
  6. UNKNOWN DRUG [Concomitant]
  7. HYDROCORTISONE [Concomitant]
  8. VITAMIN A + VITAMIN D + VITAMIN E [Concomitant]
  9. MAGNESIUM [Concomitant]
  10. TAURINE [Concomitant]
  11. ZINC [Concomitant]

REACTIONS (17)
  - ASTHENIA [None]
  - BRONCHITIS [None]
  - COUGH [None]
  - DEPRESSION [None]
  - FATIGUE [None]
  - HUNGER [None]
  - ILL-DEFINED DISORDER [None]
  - IMMOBILE [None]
  - INFLAMMATION [None]
  - MALAISE [None]
  - MUSCULAR WEAKNESS [None]
  - MYALGIA [None]
  - NASOPHARYNGITIS [None]
  - OBSESSIVE THOUGHTS [None]
  - PAIN [None]
  - SWELLING [None]
  - VOMITING [None]
